FAERS Safety Report 4546429-2 (Version None)
Quarter: 2005Q1

REPORT INFORMATION
  Report Type: 
  Country: None (occurrence: None)
  Receive Date: 20050103
  Receipt Date: 20041209
  Transmission Date: 20050727
  Serious: Yes (Death, Other)
  Sender: FDA-Public Use
  Company Number: EWC041241717

PATIENT
  Age: 73 Year
  Sex: Male

DRUGS (5)
  1. ZYPREXA [Suspect]
     Dosage: 5 MG/2 DAY
     Dates: start: 20030101
  2. DIAZEPAM [Concomitant]
  3. NEURONTIN (GABAPENTIN PFIZER) [Concomitant]
  4. REXER (MIRTAZAPINE ORIFARM) [Concomitant]
  5. SEROPRAM (CYTALOPRAM HYDROBROMIDE) [Concomitant]

REACTIONS (12)
  - AGGRESSION [None]
  - BLADDER CANCER [None]
  - CONFUSIONAL STATE [None]
  - FEEDING DISORDER [None]
  - HYPERGLYCAEMIA [None]
  - HYPERKALAEMIA [None]
  - IRRITABILITY [None]
  - SEDATION [None]
  - SPEECH DISORDER [None]
  - SUDDEN DEATH [None]
  - SYNCOPE [None]
  - URINARY TRACT INFECTION [None]
